FAERS Safety Report 5571589-4 (Version None)
Quarter: 2007Q4

REPORT INFORMATION
  Report Type: 
  Country: None (occurrence: None)
  Receive Date: 20071221
  Receipt Date: 20071221
  Transmission Date: 20080405
  Serious: Yes (Other)
  Sender: FDA-Public Use
  Company Number: FR-WYE-H01860407

PATIENT
  Sex: Male

DRUGS (5)
  1. PROPRANOLOL [Suspect]
     Indication: ATRIAL FIBRILLATION
     Route: 048
     Dates: start: 19950101
  2. PROPRANOLOL [Suspect]
     Indication: HYPERTENSION
     Route: 048
     Dates: end: 20070601
  3. PROPRANOLOL [Suspect]
     Route: 048
     Dates: start: 20070601, end: 20071209
  4. PROPRANOLOL [Suspect]
     Route: 048
     Dates: start: 20071210
  5. HYPERIUM [Concomitant]
     Dosage: UNSPECIFIED
     Dates: start: 20060601

REACTIONS (3)
  - AORTIC DILATATION [None]
  - SERUM FERRITIN INCREASED [None]
  - VENTRICULAR HYPERTROPHY [None]
